FAERS Safety Report 4765171-6 (Version None)
Quarter: 2005Q3

REPORT INFORMATION
  Report Type: 
  Country: None (occurrence: None)
  Receive Date: 20050909
  Receipt Date: 20050831
  Transmission Date: 20060218
  Serious: Yes (Hospitalization)
  Sender: FDA-Public Use
  Company Number: DE-ABBOTT-05P-062-0310048-00

PATIENT
  Sex: Female

DRUGS (8)
  1. ERGENYL CHRONO TABLETS [Suspect]
     Indication: CONVULSION
     Route: 048
     Dates: start: 20050728, end: 20050807
  2. VALPROIC ACID [Suspect]
     Indication: CONVULSION
     Route: 040
     Dates: start: 20050806, end: 20050806
  3. LACTULOSE [Concomitant]
     Indication: CONSTIPATION
     Route: 048
     Dates: start: 20050701, end: 20050801
  4. FENTANYL [Concomitant]
     Indication: PAIN
     Route: 062
  5. IBUPROFEN [Concomitant]
     Indication: CONTUSION
     Route: 048
     Dates: start: 20050101, end: 20050101
  6. HEPARIN-FRACTION, SODIUM SALT [Concomitant]
     Indication: THROMBOSIS PROPHYLAXIS
     Route: 058
     Dates: start: 20050727
  7. ANTIBIOTICS [Concomitant]
     Indication: URINARY TRACT INFECTION
     Route: 065
     Dates: start: 20050101, end: 20050101
  8. LEVETIRACETAM [Concomitant]
     Indication: EPILEPSY
     Dates: start: 20050808

REACTIONS (3)
  - GENERAL PHYSICAL HEALTH DETERIORATION [None]
  - STATUS EPILEPTICUS [None]
  - TOXIC INDUCED ENCEPHALOPATHY [None]
